FAERS Safety Report 22266016 (Version 1)
Quarter: 2023Q2

REPORT INFORMATION
  Report Type: Report from Study
  Country: LU (occurrence: LU)
  Receive Date: 20230428
  Receipt Date: 20230428
  Transmission Date: 20230722
  Serious: Yes (Other)
  Sender: FDA-Public Use
  Company Number: None

PATIENT
  Age: 35 Year
  Sex: Female
  Weight: 80 kg

DRUGS (8)
  1. AZITHROMYCIN [Suspect]
     Active Substance: AZITHROMYCIN
     Indication: Influenza like illness
     Route: 065
     Dates: start: 20221108
  2. COMIRNATY [Suspect]
     Active Substance: TOZINAMERAN
     Indication: COVID-19 immunisation
     Dosage: R2, 30 MICROGRAMS/DOSE
     Dates: start: 20220817, end: 20220817
  3. MUCOMYST [Suspect]
     Active Substance: ACETYLCYSTEINE
     Indication: Influenza like illness
     Route: 065
     Dates: start: 20221108
  4. DOLIPRANE [Suspect]
     Active Substance: ACETAMINOPHEN
     Indication: Influenza like illness
     Dates: start: 20221108
  5. VAXIGRIP [Suspect]
     Active Substance: INFLUENZA VIRUS VACCINE
     Indication: Influenza immunisation
     Route: 065
     Dates: start: 20221104, end: 20221104
  6. KARDEGIC [Concomitant]
     Active Substance: ASPIRIN DL-LYSINE
     Indication: Product used for unknown indication
     Dates: start: 2022
  7. LEVOTHYROXINE [Concomitant]
     Active Substance: LEVOTHYROXINE
     Indication: Hypothyroidism
  8. POLYETHYLENE GLYCOL 4000 [Concomitant]
     Active Substance: POLYETHYLENE GLYCOL 4000
     Indication: Product used for unknown indication

REACTIONS (2)
  - Foetal death [Not Recovered/Not Resolved]
  - Vaccination failure [Recovered/Resolved]

NARRATIVE: CASE EVENT DATE: 20221109
